FAERS Safety Report 20102080 (Version 1)
Quarter: 2021Q4

REPORT INFORMATION
  Report Type: Spontaneous
  Country: CN (occurrence: CN)
  Receive Date: 20211123
  Receipt Date: 20211123
  Transmission Date: 20220303
  Serious: Yes (Other)
  Sender: FDA-Public Use
  Company Number: CN-PFIZER INC-202101577967

PATIENT
  Age: 9 Year
  Sex: Male
  Weight: 32 kg

DRUGS (3)
  1. METHOTREXATE SODIUM [Suspect]
     Active Substance: METHOTREXATE SODIUM
     Indication: Non-Hodgkin^s lymphoma
     Dosage: HIGH-DOSE
  2. METHOTREXATE SODIUM [Suspect]
     Active Substance: METHOTREXATE SODIUM
     Dosage: 5 MG/M2, WEEKLY
  3. MERCAPTOPURINE [Concomitant]
     Active Substance: MERCAPTOPURINE
     Indication: Non-Hodgkin^s lymphoma
     Dosage: 12.5 MG/M2, 1X/DAY
     Route: 048

REACTIONS (2)
  - Toxicity to various agents [Recovered/Resolved]
  - Ataxia [Unknown]
